FAERS Safety Report 22139172 (Version 1)
Quarter: 2023Q1

REPORT INFORMATION
  Report Type: Spontaneous
  Country: ES (occurrence: ES)
  Receive Date: 20230327
  Receipt Date: 20230327
  Transmission Date: 20230418
  Serious: No
  Sender: FDA-Public Use
  Company Number: ES-PADAGIS-2023PAD00314

PATIENT

DRUGS (5)
  1. CLOBETASOL PROPIONATE [Suspect]
     Active Substance: CLOBETASOL PROPIONATE
     Indication: Lichen planus
     Dosage: UNK
     Route: 065
  2. TRIAMCINOLONE [Suspect]
     Active Substance: TRIAMCINOLONE
     Indication: Lichen planus
     Dosage: 40 MG/ML
     Route: 026
  3. ACITRETIN [Concomitant]
     Active Substance: ACITRETIN
     Indication: Lichen planus
     Dosage: UNK
     Route: 065
  4. ACITRETIN [Concomitant]
     Active Substance: ACITRETIN
     Dosage: UNK
     Route: 048
  5. SULFASALAZINE [Concomitant]
     Active Substance: SULFASALAZINE
     Indication: Lichen planus
     Dosage: UNK
     Route: 065

REACTIONS (2)
  - Disease progression [Unknown]
  - Therapy partial responder [Unknown]
